FAERS Safety Report 6692999-8 (Version None)
Quarter: 2010Q2

REPORT INFORMATION
  Report Type: 
  Country: None (occurrence: None)
  Receive Date: 20100422
  Receipt Date: 20100414
  Transmission Date: 20101027
  Serious: Yes (Other)
  Sender: FDA-Public Use
  Company Number: PHHY2010US08467

PATIENT
  Sex: Female

DRUGS (1)
  1. RECLAST [Suspect]
     Indication: OSTEOPOROSIS POSTMENOPAUSAL
     Dosage: ONCE YEARLY
     Route: 042
     Dates: start: 20090201

REACTIONS (11)
  - ALOPECIA [None]
  - ARTHRALGIA [None]
  - BONE PAIN [None]
  - DEPRESSION [None]
  - FEELING ABNORMAL [None]
  - LOOSE TOOTH [None]
  - MEDICATION ERROR [None]
  - ORAL MUCOSAL EXFOLIATION [None]
  - SWOLLEN TONGUE [None]
  - TOOTH LOSS [None]
  - VISUAL ACUITY REDUCED [None]
